FAERS Safety Report 8950345 (Version 1)
Quarter: 2012Q4

REPORT INFORMATION
  Report Type: Spontaneous
  Country: US (occurrence: None)
  Receive Date: 20121130
  Receipt Date: 20121130
  Transmission Date: 20130627
  Serious: No
  Sender: FDA-Public Use
  Company Number: None

PATIENT
  Age: 56 Year
  Sex: Male

DRUGS (9)
  1. XARELTO [Suspect]
     Indication: ATRIAL FIBRILLATION
     Dosage: 20 mg  dialy po
     Route: 048
     Dates: start: 20120713, end: 20120715
  2. ASA AND CAFFEINE [Concomitant]
  3. AXERT [Concomitant]
  4. DIGOXIN [Concomitant]
  5. LYRICA [Concomitant]
  6. NEXIUM [Concomitant]
  7. OXAPROZIN [Concomitant]
  8. TRAMADOL [Concomitant]
  9. TRAZODONE [Concomitant]

REACTIONS (1)
  - Haematuria [None]
